FAERS Safety Report 18761210 (Version 4)
Quarter: 2025Q3

REPORT INFORMATION
  Report Type: Report from Study
  Country: EU (occurrence: EU)
  Receive Date: 20210119
  Receipt Date: 20250728
  Transmission Date: 20251020
  Serious: Yes (Other)
  Sender: CSL BEHRING
  Company Number: EU-BEH-2020122470

PATIENT
  Age: 51 Year
  Sex: Female
  Weight: 74 kg

DRUGS (8)
  1. PRIVIGEN [Suspect]
     Active Substance: HUMAN IMMUNOGLOBULIN G
     Indication: Epilepsy
     Dosage: 28 GRAM, QD
     Route: 042
     Dates: start: 20200901, end: 20200905
  2. PRIVIGEN [Suspect]
     Active Substance: HUMAN IMMUNOGLOBULIN G
     Indication: Encephalitis autoimmune
     Dosage: 28 GRAM, QD
     Route: 042
     Dates: start: 20200924, end: 20200928
  3. LACOSAMIDE [Concomitant]
     Active Substance: LACOSAMIDE
     Dosage: 250 MILLIGRAM, QD
     Route: 065
  4. PREGABALIN [Concomitant]
     Active Substance: PREGABALIN
     Dosage: 75 MILLIGRAM, TID
     Route: 065
  5. BRIVARACETAM [Concomitant]
     Active Substance: BRIVARACETAM
     Dosage: 25 MILLIGRAM, BID
     Route: 065
  6. NOVORAPID [Concomitant]
     Active Substance: INSULIN ASPART
     Dosage: VARIES, TID
     Route: 065
  7. LANTUS [Concomitant]
     Active Substance: INSULIN GLARGINE
     Dosage: 7 INTERNATIONAL UNIT, QD
     Route: 065
  8. PRIVIGEN [Suspect]
     Active Substance: HUMAN IMMUNOGLOBULIN G
     Indication: Encephalitis
     Route: 065

REACTIONS (22)
  - Epilepsy [Unknown]
  - Encephalitis [Unknown]
  - Anaemia [Recovered/Resolved]
  - Musculoskeletal pain [Recovered/Resolved]
  - Non-cardiac chest pain [Recovered/Resolved]
  - Nausea [Recovered/Resolved]
  - Headache [Recovered/Resolved]
  - Hyponatraemia [Recovered/Resolved]
  - Product use in unapproved indication [Recovered/Resolved]
  - Abnormal dreams [Recovered/Resolved]
  - Abnormal dreams [Recovering/Resolving]
  - Blood immunoglobulin G increased [Recovered/Resolved]
  - Headache [Recovered/Resolved]
  - Nausea [Recovered/Resolved]
  - Hyponatraemia [Recovered/Resolved]
  - Hypoalbuminaemia [Recovered/Resolved]
  - Alanine aminotransferase increased [Recovered/Resolved]
  - Aspartate aminotransferase increased [Recovered/Resolved]
  - White blood cell count decreased [Recovered/Resolved]
  - Fatigue [Recovered/Resolved]
  - Off label use [Unknown]
  - Infusion site extravasation [Recovered/Resolved]

NARRATIVE: CASE EVENT DATE: 20200901
